FAERS Safety Report 23222986 (Version 1)
Quarter: 2023Q4

REPORT INFORMATION
  Report Type: Spontaneous
  Country: US (occurrence: US)
  Receive Date: 20231123
  Receipt Date: 20231123
  Transmission Date: 20240109
  Serious: Yes (Other)
  Sender: FDA-Public Use
  Company Number: US-TEVA-2023-US-2947773

PATIENT
  Sex: Female

DRUGS (2)
  1. CARVEDILOL [Suspect]
     Active Substance: CARVEDILOL
     Indication: Cardiac failure
     Dosage: 25 MILLIGRAM DAILY;
     Route: 065
     Dates: start: 2012
  2. DILTIAZEM [Suspect]
     Active Substance: DILTIAZEM
     Indication: Product used for unknown indication
     Dosage: 250 MILLIGRAM DAILY;
     Route: 065
     Dates: start: 2012

REACTIONS (13)
  - Cerebrovascular accident [Unknown]
  - Myocarditis [Unknown]
  - Cardiac discomfort [Unknown]
  - Chills [Unknown]
  - Arthralgia [Unknown]
  - Dizziness [Unknown]
  - Nausea [Unknown]
  - Vomiting [Unknown]
  - Fatigue [Unknown]
  - Malaise [Unknown]
  - Myalgia [Unknown]
  - Pyrexia [Unknown]
  - Retching [Recovering/Resolving]

NARRATIVE: CASE EVENT DATE: 20220601
